FAERS Safety Report 10179901 (Version 1)
Quarter: 2014Q2

REPORT INFORMATION
  Report Type: Spontaneous
  Country: US (occurrence: US)
  Receive Date: 20140519
  Receipt Date: 20140519
  Transmission Date: 20141212
  Serious: No
  Sender: FDA-Public Use
  Company Number: US-AMGEN INC.-USASP2013074904

PATIENT
  Age: 51 Year
  Sex: Female

DRUGS (4)
  1. PROLIA [Suspect]
     Indication: BONE LOSS
     Dosage: UNK
     Route: 065
     Dates: start: 20130205
  2. ARIMIDEX [Concomitant]
     Indication: BREAST CANCER
  3. CRESTOR [Concomitant]
  4. VITAMINS                           /90003601/ [Concomitant]

REACTIONS (4)
  - Nasopharyngitis [Recovering/Resolving]
  - Cough [Unknown]
  - Back pain [Recovered/Resolved]
  - Pain in extremity [Unknown]
